FAERS Safety Report 17577460 (Version 1)
Quarter: 2020Q1

REPORT INFORMATION
  Report Type: Spontaneous
  Country: US (occurrence: US)
  Receive Date: 20200324
  Receipt Date: 20200324
  Transmission Date: 20200409
  Serious: No
  Sender: FDA-Public Use
  Company Number: US-PERRIGO-19US010775

PATIENT
  Sex: Male

DRUGS (2)
  1. FAMOTIDINE, CALCIUM CARBONATE, AND MAGNESIUM HYDROXIDE [Suspect]
     Active Substance: CALCIUM CARBONATE\FAMOTIDINE\MAGNESIUM HYDROXIDE
     Indication: DYSPEPSIA
     Dosage: 1 TABLET, PRN
     Route: 048
     Dates: start: 2014, end: 20190829
  2. FAMOTIDINE, CALCIUM CARBONATE, AND MAGNESIUM HYDROXIDE [Suspect]
     Active Substance: CALCIUM CARBONATE\FAMOTIDINE\MAGNESIUM HYDROXIDE
     Dosage: UNKNOWN, UNKNOWN
     Route: 048
     Dates: start: 202001

REACTIONS (6)
  - Headache [Recovered/Resolved]
  - Musculoskeletal discomfort [Recovered/Resolved]
  - Therapeutic product effect decreased [Unknown]
  - Hypersensitivity [Recovered/Resolved]
  - Chest pain [Recovered/Resolved]
  - Dyspnoea [Recovered/Resolved]

NARRATIVE: CASE EVENT DATE: 202001
